FAERS Safety Report 9202505 (Version 3)
Quarter: 2013Q2

REPORT INFORMATION
  Report Type: Spontaneous
  Country: SE (occurrence: SE)
  Receive Date: 20130401
  Receipt Date: 20130509
  Transmission Date: 20140414
  Serious: Yes (Death)
  Sender: FDA-Public Use
  Company Number: SE-ABBOTT-13P-150-1069815-00

PATIENT
  Age: 73 Year
  Sex: Female

DRUGS (4)
  1. HUMIRA [Suspect]
     Indication: RHEUMATOID ARTHRITIS
     Route: 058
     Dates: start: 20120614, end: 20130204
  2. METOTREXATE [Suspect]
     Indication: RHEUMATOID ARTHRITIS
     Route: 048
     Dates: start: 20080611, end: 20130204
  3. ALENAT [Concomitant]
     Indication: PRODUCT USED FOR UNKNOWN INDICATION
  4. FOLACIN [Concomitant]
     Indication: PRODUCT USED FOR UNKNOWN INDICATION

REACTIONS (2)
  - Adverse drug reaction [Fatal]
  - Pulmonary fibrosis [Fatal]
